FAERS Safety Report 10029733 (Version 1)
Quarter: 2014Q1

REPORT INFORMATION
  Report Type: Spontaneous
  Country: US (occurrence: None)
  Receive Date: 20140321
  Receipt Date: 20140321
  Transmission Date: 20141002
  Serious: Yes (Other)
  Sender: FDA-Public Use
  Company Number: None

PATIENT
  Age: 62 Year
  Sex: Female
  Weight: 68.49 kg

DRUGS (1)
  1. 5-FU [Suspect]
     Indication: DEVICE THERAPY

REACTIONS (2)
  - Device malfunction [None]
  - Therapy cessation [None]
